FAERS Safety Report 5441145-7 (Version None)
Quarter: 2007Q3

REPORT INFORMATION
  Report Type: 
  Country: None (occurrence: None)
  Receive Date: 20070831
  Receipt Date: 20070821
  Transmission Date: 20080115
  Serious: Yes (Other)
  Sender: FDA-Public Use
  Company Number: PFIZER INC-2007068752

PATIENT
  Age: 57 Year
  Sex: Female
  Weight: 63 kg

DRUGS (3)
  1. SUTENT [Suspect]
     Indication: UTERINE LEIOMYOSARCOMA
     Route: 048
  2. NIFEDIPINE [Suspect]
  3. METOPROLOL SUCCINATE [Suspect]

REACTIONS (1)
  - NAIL DISORDER [None]
